FAERS Safety Report 5615322-6 (Version None)
Quarter: 2008Q1

REPORT INFORMATION
  Report Type: 
  Country: None (occurrence: None)
  Receive Date: 20080206
  Receipt Date: 20080131
  Transmission Date: 20080703
  Serious: Yes (Hospitalization)
  Sender: FDA-Public Use
  Company Number: B0505866A

PATIENT
  Sex: Male

DRUGS (2)
  1. SEREVENT [Suspect]
     Indication: CHRONIC OBSTRUCTIVE PULMONARY DISEASE
     Dosage: 50MCG TWICE PER DAY
     Route: 055
     Dates: start: 20071017
  2. SPIRIVA [Concomitant]
     Dosage: 1 PER DAY
     Route: 055

REACTIONS (2)
  - CEREBRAL INFARCTION [None]
  - CIRRHOSIS ALCOHOLIC [None]
